FAERS Safety Report 18414408 (Version 5)
Quarter: 2020Q4

REPORT INFORMATION
  Report Type: Report from Study
  Country: HK (occurrence: HK)
  Receive Date: 20201022
  Receipt Date: 20201120
  Transmission Date: 20210114
  Serious: Yes (Hospitalization, Other)
  Sender: FDA-Public Use
  Company Number: HK-BRISTOL-MYERS SQUIBB COMPANY-BMS-2020-086510

PATIENT
  Age: 55 Year
  Sex: Male
  Weight: 81 kg

DRUGS (4)
  1. NIVOLUMAB [Suspect]
     Active Substance: NIVOLUMAB
     Dosage: 81 MILLIGRAM
     Route: 065
     Dates: start: 20201008, end: 20201008
  2. NIVOLUMAB [Suspect]
     Active Substance: NIVOLUMAB
     Indication: HEPATOCELLULAR CARCINOMA
     Dosage: 81 MILLIGRAM
     Route: 065
     Dates: start: 20200917, end: 20200917
  3. IPILIMUMAB [Suspect]
     Active Substance: IPILIMUMAB
     Indication: HEPATOCELLULAR CARCINOMA
     Dosage: 242 MILLIGRAM
     Route: 065
     Dates: start: 20200917, end: 20200917
  4. IPILIMUMAB [Suspect]
     Active Substance: IPILIMUMAB
     Dosage: 242 MILLIGRAM
     Route: 065
     Dates: start: 20201008, end: 20201008

REACTIONS (1)
  - Pemphigoid [Recovered/Resolved]

NARRATIVE: CASE EVENT DATE: 20201015
